FAERS Safety Report 10083293 (Version 1)
Quarter: 2014Q2

REPORT INFORMATION
  Report Type: Spontaneous
  Country: US (occurrence: None)
  Receive Date: 20140415
  Receipt Date: 20140415
  Transmission Date: 20141212
  Serious: Yes (Life-Threatening, Hospitalization)
  Sender: FDA-Public Use
  Company Number: 152964

PATIENT
  Age: 80 Year
  Sex: Male

DRUGS (1)
  1. ADRIAMYCIN [Suspect]
     Indication: NON-HODGKIN^S LYMPHOMA
     Dosage: PER CHEMO CYCLE
     Route: 042
     Dates: start: 20111227

REACTIONS (4)
  - Pneumonia [None]
  - Pulmonary embolism [None]
  - Gastrointestinal haemorrhage [None]
  - Sepsis [None]
